FAERS Safety Report 16365671 (Version 4)
Quarter: 2021Q1

REPORT INFORMATION
  Report Type: Spontaneous
  Country: IT (occurrence: IT)
  Receive Date: 20190529
  Receipt Date: 20210219
  Transmission Date: 20210419
  Serious: Yes (Life-Threatening, Hospitalization, Other)
  Sender: FDA-Public Use
  Company Number: IT-AUROBINDO-AUR-APL-2019-028620

PATIENT
  Age: 57 Year
  Sex: Female

DRUGS (3)
  1. HALOPERIDOL. [Suspect]
     Active Substance: HALOPERIDOL
     Indication: PSYCHOTIC DISORDER
     Dosage: UNK
     Route: 065
  2. OLANZAPINE. [Suspect]
     Active Substance: OLANZAPINE
     Indication: SCHIZOPHRENIA
     Dosage: 10 MILLIGRAM, ONCE A DAY
     Route: 065
  3. OLANZAPINE. [Suspect]
     Active Substance: OLANZAPINE
     Indication: PSYCHOTIC DISORDER

REACTIONS (18)
  - Pulmonary embolism [Recovering/Resolving]
  - Abdominal pain [Unknown]
  - Off label use [Unknown]
  - Lethargy [Unknown]
  - Infection [Unknown]
  - Somnolence [Unknown]
  - Immobilisation prolonged [Unknown]
  - Mesenteric vein thrombosis [Recovering/Resolving]
  - Portal vein thrombosis [Recovering/Resolving]
  - Renal failure [Unknown]
  - Weight increased [Unknown]
  - Intestinal ischaemia [Recovering/Resolving]
  - Colitis ischaemic [Recovering/Resolving]
  - Systemic infection [Recovering/Resolving]
  - Vomiting [Unknown]
  - Visceral venous thrombosis [Unknown]
  - Pneumonia aspiration [Recovering/Resolving]
  - Acute kidney injury [Recovering/Resolving]
